APPROVED DRUG PRODUCT: PARICALCITOL
Active Ingredient: PARICALCITOL
Strength: 2MCG
Dosage Form/Route: CAPSULE;ORAL
Application: A090829 | Product #002 | TE Code: AB
Applicant: TEVA PHARMACEUTICALS USA
Approved: Sep 27, 2013 | RLD: No | RS: No | Type: RX